FAERS Safety Report 8073157-1 (Version None)
Quarter: 2012Q1

REPORT INFORMATION
  Report Type: 
  Country: None (occurrence: None)
  Receive Date: 20120126
  Receipt Date: 20120119
  Transmission Date: 20120608
  Serious: Yes (Hospitalization)
  Sender: FDA-Public Use
  Company Number: US-ELI_LILLY_AND_COMPANY-US201201005998

PATIENT
  Sex: Male
  Weight: 80.7 kg

DRUGS (13)
  1. PEMETREXED [Suspect]
     Indication: NON-SMALL CELL LUNG CANCER
     Dosage: 500 MG/M2, ON DAY 1 OF 3 WEEK CYCLE
     Route: 042
     Dates: start: 20110517, end: 20120110
  2. VITAMIN B-12 [Concomitant]
     Indication: PREMEDICATION
     Dosage: 1000 UG, EVERY 9 WEEKS
     Dates: start: 20110509, end: 20120110
  3. ADVAIR DISKUS 100/50 [Concomitant]
     Indication: CHRONIC OBSTRUCTIVE PULMONARY DISEASE
     Dosage: UNK
     Route: 055
     Dates: start: 20090603
  4. TESSALON [Concomitant]
     Indication: COUGH
     Dosage: 100 MG, TID
     Dates: start: 20111129
  5. SLOW MAG [Concomitant]
     Indication: SUPPLEMENTATION THERAPY
     Dosage: 71.5 MG, UNK
     Dates: start: 20110816
  6. DEXAMETHASONE [Concomitant]
     Indication: PREMEDICATION
     Dosage: 4 MG, BID
     Dates: start: 20120109, end: 20120111
  7. CARBOPLATIN [Suspect]
     Indication: NON-SMALL CELL LUNG CANCER
     Dosage: AUC=6 ON DAY 1 OF 3 WEEK CYCLE
     Route: 042
     Dates: start: 20110517, end: 20110907
  8. ALLOPURINOL [Concomitant]
     Indication: GOUT
     Dosage: 100 MG, QD
     Dates: start: 20110908
  9. MOTRIN [Concomitant]
     Indication: BACK PAIN
     Dosage: 600 MG, UNK
     Dates: start: 20100217
  10. PERCOCET [Concomitant]
     Indication: PAIN
     Dosage: UNK
     Dates: start: 20090618
  11. FOLIC ACID [Concomitant]
     Indication: PREMEDICATION
     Dosage: UNK
     Dates: start: 20110509
  12. ALBUTEROL [Concomitant]
     Indication: CHRONIC OBSTRUCTIVE PULMONARY DISEASE
     Dosage: UNK
     Dates: start: 20100217
  13. COMPAZINE [Concomitant]
     Indication: NAUSEA
     Dosage: UNK
     Dates: start: 20110517

REACTIONS (2)
  - COUGH [None]
  - FEBRILE NEUTROPENIA [None]
